FAERS Safety Report 17159932 (Version 1)
Quarter: 2019Q4

REPORT INFORMATION
  Report Type: Spontaneous
  Country: US (occurrence: US)
  Receive Date: 20191216
  Receipt Date: 20191216
  Transmission Date: 20200122
  Serious: No
  Sender: FDA-Public Use
  Company Number: US-SA-2019SA343858

PATIENT
  Sex: Male

DRUGS (1)
  1. KAOPECTATE REGULAR STRENGTH VANILLA FLAVOR ANTI DIARRHEAL [Suspect]
     Active Substance: BISMUTH SUBSALICYLATE

REACTIONS (3)
  - Diarrhoea [Unknown]
  - Ear infection [Unknown]
  - Tinnitus [Unknown]
